FAERS Safety Report 5950867-0 (Version None)
Quarter: 2008Q4

REPORT INFORMATION
  Report Type: 
  Country: None (occurrence: None)
  Receive Date: 20081110
  Receipt Date: 20081106
  Transmission Date: 20090506
  Serious: Yes (Hospitalization)
  Sender: FDA-Public Use
  Company Number: IL-DEXPHARM-20081238

PATIENT
  Age: 70 Year
  Sex: Male

DRUGS (1)
  1. OMEPRAZOLE OMEPRADEX CAPLETS 20 MG [Suspect]
     Dosage: 20 MG MILLGRAM(S) ORAL
     Route: 048

REACTIONS (1)
  - HYPOMAGNESAEMIA [None]
